FAERS Safety Report 16118845 (Version 1)
Quarter: 2019Q1

REPORT INFORMATION
  Report Type: Spontaneous
  Country: US (occurrence: US)
  Receive Date: 20190326
  Receipt Date: 20190326
  Transmission Date: 20190418
  Serious: No
  Sender: FDA-Public Use
  Company Number: US-SUNOVION-2019SUN001077

PATIENT
  Age: 44 Year
  Sex: Male
  Weight: 70.3 kg

DRUGS (11)
  1. PROVENTIL [Concomitant]
     Active Substance: ALBUTEROL
     Indication: ASTHMA
     Dosage: UNK, AS NECESSARY
     Route: 055
  2. WELLBUTRIN [Concomitant]
     Active Substance: BUPROPION HYDROCHLORIDE
  3. LATUDA [Suspect]
     Active Substance: LURASIDONE HYDROCHLORIDE
     Dosage: 80 MG
     Route: 048
  4. LATUDA [Suspect]
     Active Substance: LURASIDONE HYDROCHLORIDE
     Dosage: 40 MG
     Route: 048
  5. ZOLOFT [Concomitant]
     Active Substance: SERTRALINE HYDROCHLORIDE
  6. LATUDA [Suspect]
     Active Substance: LURASIDONE HYDROCHLORIDE
     Indication: BIPOLAR II DISORDER
     Dosage: 40 MG
     Route: 048
  7. LATUDA [Suspect]
     Active Substance: LURASIDONE HYDROCHLORIDE
     Dosage: 60 MG
     Route: 048
  8. LATUDA [Suspect]
     Active Substance: LURASIDONE HYDROCHLORIDE
     Dosage: 60 MG
     Route: 048
  9. LATUDA [Suspect]
     Active Substance: LURASIDONE HYDROCHLORIDE
     Dosage: 20 MG
     Route: 048
     Dates: start: 201812
  10. LAMICTAL [Concomitant]
     Active Substance: LAMOTRIGINE
  11. XANAX [Concomitant]
     Active Substance: ALPRAZOLAM

REACTIONS (10)
  - Libido decreased [Unknown]
  - Depressed mood [Unknown]
  - Anhedonia [Unknown]
  - Depression [Unknown]
  - Personality disorder [Unknown]
  - Apathy [Unknown]
  - Off label use [Unknown]
  - Feeling abnormal [Unknown]
  - Flat affect [Unknown]
  - Crying [Unknown]

NARRATIVE: CASE EVENT DATE: 201812
